FAERS Safety Report 6603035-3 (Version None)
Quarter: 2010Q1

REPORT INFORMATION
  Report Type: 
  Country: None (occurrence: None)
  Receive Date: 20100226
  Receipt Date: 20100217
  Transmission Date: 20100710
  Serious: Yes (Death, Other)
  Sender: FDA-Public Use
  Company Number: DE-BRISTOL-MYERS SQUIBB COMPANY-14981849

PATIENT
  Age: 52 Year
  Sex: Female

DRUGS (5)
  1. TAXOL [Suspect]
     Indication: NON-SMALL CELL LUNG CANCER
     Dosage: SUBSEQUENTLY 1 HR INFU.CYCLE2 ON 19DEC03
     Dates: start: 20031118, end: 20031209
  2. CARBOPLATIN [Suspect]
     Indication: NON-SMALL CELL LUNG CANCER
     Dosage: 1 DF=AUC5.60 MINUTES INFU.CYCLE2 ON 19DEC03
     Dates: start: 20031118, end: 20031219
  3. DEXAMETHASONE [Concomitant]
     Route: 048
     Dates: start: 20031118
  4. CLEMASTINE FUMARATE [Concomitant]
     Route: 042
     Dates: start: 20031118
  5. RANITIDINE [Concomitant]
     Route: 042
     Dates: start: 20031118

REACTIONS (4)
  - DYSPNOEA [None]
  - MALIGNANT NEOPLASM PROGRESSION [None]
  - PNEUMONIA [None]
  - RESPIRATORY FAILURE [None]
